FAERS Safety Report 14515995 (Version 1)
Quarter: 2018Q1

REPORT INFORMATION
  Report Type: Report from Study
  Country: US (occurrence: US)
  Receive Date: 20180211
  Receipt Date: 20180211
  Transmission Date: 20180509
  Serious: No
  Sender: FDA-Public Use
  Company Number: US-PUMA BIOTECHNOLOGY, LTD.-2017US015510

PATIENT

DRUGS (2)
  1. NERLYNX [Suspect]
     Active Substance: NERATINIB
     Dosage: 5 TABLETS DAILY
     Route: 048
     Dates: start: 20171206
  2. NERLYNX [Suspect]
     Active Substance: NERATINIB
     Indication: BREAST CANCER
     Dosage: 240 MG, DAILY
     Route: 048
     Dates: start: 20171104, end: 20171201

REACTIONS (6)
  - Fatigue [Unknown]
  - Paronychia [Unknown]
  - Constipation [Unknown]
  - Diarrhoea [Recovering/Resolving]
  - Abdominal distension [Unknown]
  - Abdominal pain [Unknown]
